FAERS Safety Report 11990862 (Version 5)
Quarter: 2016Q2

REPORT INFORMATION
  Report Type: Spontaneous
  Country: US (occurrence: US)
  Receive Date: 20160202
  Receipt Date: 20160418
  Transmission Date: 20160815
  Serious: Yes (Hospitalization, Other)
  Sender: FDA-Public Use
  Company Number: US-KOWA-15US001153

PATIENT
  Age: 75 Year
  Sex: Female
  Weight: 72.57 kg

DRUGS (16)
  1. BAYER ASPIRIN [Concomitant]
     Active Substance: ASPIRIN
     Dosage: UNK
  2. B 100 COMPLEX [Concomitant]
     Dosage: UNK, QD
  3. METOPROLOL SUCCINATE ER [Concomitant]
     Active Substance: METOPROLOL SUCCINATE
     Dosage: 25 MG, QD
     Dates: start: 20140921
  4. LUTEIN                             /01638501/ [Concomitant]
     Active Substance: LUTEIN
     Dosage: 25 UNK, UNK
  5. EYLEA [Concomitant]
     Active Substance: AFLIBERCEPT
     Indication: NEOVASCULAR AGE-RELATED MACULAR DEGENERATION
     Dosage: UNK
     Route: 031
     Dates: start: 20160225
  6. LIVALO [Suspect]
     Active Substance: PITAVASTATIN CALCIUM
     Indication: PRODUCT USED FOR UNKNOWN INDICATION
     Dosage: 2 MG, QD
     Route: 048
     Dates: start: 20141001
  7. CLOPIDOGREL [Concomitant]
     Active Substance: CLOPIDOGREL BISULFATE
     Dosage: 75 MG, QD
  8. CENTRUM                            /00554501/ [Concomitant]
     Active Substance: VITAMINS
     Dosage: 2 UNK, QD
  9. POTASSIUM CITRATE. [Concomitant]
     Active Substance: POTASSIUM CITRATE
     Indication: MUSCLE SPASMS
     Dosage: 99 MG, UNK
     Dates: start: 201510
  10. LISINOPRIL. [Concomitant]
     Active Substance: LISINOPRIL
     Dosage: UNK
     Dates: start: 201112, end: 20160307
  11. LISINOPRIL. [Concomitant]
     Active Substance: LISINOPRIL
     Dosage: 10 MG, UNK
     Dates: start: 20160307
  12. VITAMIN D                          /00107901/ [Concomitant]
     Active Substance: ERGOCALCIFEROL
     Dosage: 2000 MG, QD
  13. UBIQUINOL [Concomitant]
     Active Substance: UBIQUINOL
     Dosage: 100 MG, UNK
     Dates: start: 2011
  14. VITAMIN K2                         /00357701/ [Concomitant]
     Indication: BLOOD CALCIUM
     Dosage: 90 ?G, QD
     Dates: start: 2011
  15. LUTEIN                             /01638501/ [Concomitant]
     Active Substance: LUTEIN
     Indication: EYE DISORDER
     Dosage: 20 MG, UNK
  16. VITAMIN D3 [Concomitant]
     Active Substance: CHOLECALCIFEROL
     Dosage: UNK, QD
     Dates: start: 2011

REACTIONS (11)
  - Carotid artery occlusion [Not Recovered/Not Resolved]
  - Dry mouth [Not Recovered/Not Resolved]
  - Dyspnoea [Recovered/Resolved]
  - Catheterisation cardiac [Recovered/Resolved]
  - Basal cell carcinoma [Recovered/Resolved]
  - Muscle spasms [Recovered/Resolved]
  - Rhinitis [Recovering/Resolving]
  - Blood pressure increased [Recovered/Resolved]
  - Chest discomfort [Recovered/Resolved]
  - Malignant melanoma [Recovered/Resolved]
  - Neovascular age-related macular degeneration [Not Recovered/Not Resolved]

NARRATIVE: CASE EVENT DATE: 2015
